FAERS Safety Report 14079700 (Version 2)
Quarter: 2017Q4

REPORT INFORMATION
  Report Type: Spontaneous
  Country: PL (occurrence: PL)
  Receive Date: 20171012
  Receipt Date: 20171019
  Transmission Date: 20180321
  Serious: Yes (Other)
  Sender: FDA-Public Use
  Company Number: PL-PFIZER INC-2017418536

PATIENT
  Sex: Male

DRUGS (4)
  1. ENARENAL [Concomitant]
     Active Substance: ENALAPRIL
     Dosage: UNK
  2. AGEN [Concomitant]
     Dosage: UNK UNK, 1X/DAY
  3. DALACIN C [Suspect]
     Active Substance: CLINDAMYCIN PHOSPHATE
     Indication: ABSCESS
     Dosage: 300 MG, EVERY 8 HOURS
     Dates: start: 20170926, end: 20171001
  4. LOKREN [Concomitant]
     Active Substance: BETAXOLOL HYDROCHLORIDE
     Dosage: UNK UNK, 1X/DAY

REACTIONS (6)
  - Feeling abnormal [Unknown]
  - Diarrhoea [Recovered/Resolved]
  - Abscess rupture [Recovered/Resolved]
  - Haematochezia [Not Recovered/Not Resolved]
  - Nausea [Unknown]
  - Asthenia [Not Recovered/Not Resolved]

NARRATIVE: CASE EVENT DATE: 2017
